FAERS Safety Report 5239821-4 (Version None)
Quarter: 2007Q1

REPORT INFORMATION
  Report Type: 
  Country: None (occurrence: None)
  Receive Date: 20070216
  Receipt Date: 20070205
  Transmission Date: 20070707
  Serious: Yes (Other)
  Sender: FDA-Public Use
  Company Number: HQWYE908307FEB07

PATIENT
  Age: 33 Year
  Sex: Male

DRUGS (19)
  1. TYGACIL [Suspect]
     Indication: CATHETER SITE INFLAMMATION
     Dosage: 100 MG LOADING DOSE FOLLOWED BY 50 MG EVERY 12 HOURS
     Route: 042
  2. TYGACIL [Suspect]
     Indication: PERITONITIS
  3. IMIPENEM/CILASTATIN [Concomitant]
     Indication: KLEBSIELLA INFECTION
     Dosage: UNKNOWN
  4. IMIPENEM/CILASTATIN [Concomitant]
     Indication: ACINETOBACTER INFECTION
  5. IMIPENEM/CILASTATIN [Concomitant]
     Indication: MULTIPLE-DRUG RESISTANCE
  6. TACROLIMUS [Concomitant]
  7. DOXYCYCLINE [Concomitant]
     Indication: KLEBSIELLA INFECTION
     Dosage: UNKNOWN
  8. DOXYCYCLINE [Concomitant]
     Indication: ACINETOBACTER INFECTION
  9. DOXYCYCLINE [Concomitant]
     Indication: MULTIPLE-DRUG RESISTANCE
  10. AMPICILLIN SODIUM/SULBACTAM SODIUM [Concomitant]
     Indication: KLEBSIELLA INFECTION
     Dosage: UNKNOWN
  11. AMPICILLIN SODIUM/SULBACTAM SODIUM [Concomitant]
     Indication: ACINETOBACTER INFECTION
  12. AMPICILLIN SODIUM/SULBACTAM SODIUM [Concomitant]
     Indication: MULTIPLE-DRUG RESISTANCE
  13. COLISTIMETHATE SODIUM [Concomitant]
     Indication: ACINETOBACTER INFECTION
     Dosage: UNKNWON
  14. COLISTIMETHATE SODIUM [Concomitant]
     Indication: KLEBSIELLA INFECTION
  15. COLISTIMETHATE SODIUM [Concomitant]
     Indication: MULTIPLE-DRUG RESISTANCE
  16. LINEZOLID [Concomitant]
     Indication: MULTIPLE-DRUG RESISTANCE
     Dosage: UNKNOWN
  17. LINEZOLID [Concomitant]
     Indication: ACINETOBACTER INFECTION
  18. LINEZOLID [Concomitant]
     Indication: KLEBSIELLA INFECTION
  19. PREDNISONE TAB [Concomitant]
     Indication: IMMUNOSUPPRESSION
     Dosage: UNKNOWN

REACTIONS (1)
  - ANTIBIOTIC LEVEL BELOW THERAPEUTIC [None]
